FAERS Safety Report 7942735-X (Version None)
Quarter: 2011Q4

REPORT INFORMATION
  Report Type: 
  Country: None (occurrence: None)
  Receive Date: 20111128
  Receipt Date: 20111005
  Transmission Date: 20120403
  Serious: No
  Sender: FDA-Public Use
  Company Number: US-BAYER-2011-096216

PATIENT
  Sex: Female

DRUGS (2)
  1. ALEVE (CAPLET) [Suspect]
     Indication: MIGRAINE
  2. EXCEDRIN [ACETYLSALICYLIC ACID,CAFFEINE,PARACETAMOL] [Concomitant]
     Indication: MIGRAINE

REACTIONS (1)
  - MIGRAINE [None]
